FAERS Safety Report 8338817-3 (Version None)
Quarter: 2012Q2

REPORT INFORMATION
  Report Type: 
  Country: None (occurrence: None)
  Receive Date: 20120504
  Receipt Date: 20120501
  Transmission Date: 20120825
  Serious: Yes (Hospitalization)
  Sender: FDA-Public Use
  Company Number: JP-MERCK-1205USA00451

PATIENT
  Age: 68 Year
  Sex: Male

DRUGS (4)
  1. AMARYL [Concomitant]
     Indication: DIABETES MELLITUS
     Dosage: DIVIDED DOSE FREQUENCY U
     Route: 048
     Dates: start: 20110920
  2. DIOVAN [Concomitant]
     Indication: HYPERTENSION
     Dosage: DIVIDED DOSE FREQUENCY U
     Route: 048
     Dates: start: 20110613
  3. AMARYL [Concomitant]
     Dosage: DIVIDED DOSE FREQUENCY U
     Route: 048
     Dates: start: 20110623, end: 20110920
  4. JANUVIA [Suspect]
     Indication: DIABETES MELLITUS
     Dosage: DIVIDED DOSE FREQUENCY U
     Route: 048
     Dates: start: 20110613

REACTIONS (1)
  - INTESTINAL OBSTRUCTION [None]
